FAERS Safety Report 8216738-4 (Version None)
Quarter: 2012Q1

REPORT INFORMATION
  Report Type: 
  Country: None (occurrence: None)
  Receive Date: 20120316
  Receipt Date: 20120306
  Transmission Date: 20120608
  Serious: Yes (Hospitalization, Other)
  Sender: FDA-Public Use
  Company Number: GB-ROCHE-1047180

PATIENT
  Sex: Female

DRUGS (12)
  1. WARFARIN SODIUM [Concomitant]
     Dosage: 3 MG/1MG
  2. FOLIC ACID [Concomitant]
  3. METHOTREXATE [Concomitant]
  4. PREDNISOLONE [Concomitant]
  5. MABTHERA [Suspect]
     Indication: PRODUCT USED FOR UNKNOWN INDICATION
     Dates: start: 20090715
  6. VITAMIN D [Concomitant]
  7. DIGOXIN [Concomitant]
  8. BENDROFLUAZIDE [Concomitant]
  9. CALCIUM CARBONATE [Concomitant]
  10. LEVOTHYROXINE SODIUM [Concomitant]
  11. ALENDRONATE SODIUM [Concomitant]
  12. SPIRONOLACTONE [Concomitant]

REACTIONS (5)
  - ABDOMINAL ABSCESS [None]
  - RENAL FAILURE ACUTE [None]
  - DIVERTICULUM [None]
  - PSEUDOMEMBRANOUS COLITIS [None]
  - COLONIC STENOSIS [None]
